FAERS Safety Report 6862902-6 (Version None)
Quarter: 2010Q3

REPORT INFORMATION
  Report Type: 
  Country: None (occurrence: None)
  Receive Date: 20100721
  Receipt Date: 20100713
  Transmission Date: 20110219
  Serious: Yes (Other)
  Sender: FDA-Public Use
  Company Number: B0661333A

PATIENT
  Age: 63 Year
  Sex: Male

DRUGS (2)
  1. FORTUM [Suspect]
     Indication: INFECTION
     Dosage: .2G PER DAY
     Route: 042
     Dates: start: 20100512, end: 20100525
  2. UNKNOWN [Concomitant]

REACTIONS (1)
  - DERMATITIS EXFOLIATIVE [None]
